FAERS Safety Report 5033547-8 (Version None)
Quarter: 2006Q2

REPORT INFORMATION
  Report Type: 
  Country: None (occurrence: None)
  Receive Date: 20060621
  Receipt Date: 20060609
  Transmission Date: 20061013
  Serious: Yes (Death)
  Sender: FDA-Public Use
  Company Number: USA-2006-0024451

PATIENT
  Age: 43 Year
  Sex: Male
  Weight: 79.4 kg

DRUGS (5)
  1. OXYCODONE HCL [Suspect]
     Indication: DRUG USE FOR UNKNOWN INDICATION
  2. MORPHINE [Suspect]
     Indication: DRUG USE FOR UNKNOWN INDICATION
  3. OXYMORPHONE (OXYMORPHONE) [Suspect]
     Indication: DRUG USE FOR UNKNOWN INDICATION
  4. METHADONE (METHADONE) [Suspect]
     Indication: DRUG USE FOR UNKNOWN INDICATION
  5. ALPRAZOLAM [Suspect]
     Indication: DRUG USE FOR UNKNOWN INDICATION

REACTIONS (7)
  - ASPHYXIA [None]
  - BRAIN OEDEMA [None]
  - CARDIOMEGALY [None]
  - COMPLETED SUICIDE [None]
  - DRUG USE FOR UNKNOWN INDICATION [None]
  - PULMONARY OEDEMA [None]
  - VENTRICULAR HYPERTROPHY [None]
